FAERS Safety Report 4450696-3 (Version None)
Quarter: 2004Q3

REPORT INFORMATION
  Report Type: 
  Country: None (occurrence: None)
  Receive Date: 20040914
  Receipt Date: 20040914
  Transmission Date: 20050211
  Serious: No
  Sender: FDA-Public Use
  Company Number: None

PATIENT
  Age: 70 Year
  Sex: Male
  Weight: 96.1626 kg

DRUGS (3)
  1. ATORVASTATIN 80 MG [Suspect]
     Indication: HYPERLIPIDAEMIA
     Dosage: 40 MG QD PO
     Route: 048
     Dates: start: 20040527, end: 20040610
  2. URSODIOL [Concomitant]
  3. OMEPRAZOLE [Concomitant]

REACTIONS (5)
  - BACK PAIN [None]
  - CHROMATURIA [None]
  - DIARRHOEA [None]
  - NAUSEA [None]
  - VOMITING [None]
